FAERS Safety Report 7381967-9 (Version None)
Quarter: 2011Q1

REPORT INFORMATION
  Report Type: 
  Country: None (occurrence: None)
  Receive Date: 20110329
  Receipt Date: 20110318
  Transmission Date: 20110831
  Serious: Yes (Death, Other)
  Sender: FDA-Public Use
  Company Number: US-BAXTER-2010BH003434

PATIENT
  Age: 40 Year
  Sex: Female
  Weight: 103 kg

DRUGS (66)
  1. HEPARIN SODIUM INJECTION [Suspect]
     Indication: THROMBOSIS PROPHYLAXIS
     Route: 058
     Dates: start: 20071008, end: 20071104
  2. HEPARIN SODIUM INJECTION [Suspect]
     Route: 010
     Dates: start: 20070924, end: 20070924
  3. HEPARIN SODIUM INJECTION [Suspect]
     Route: 042
     Dates: start: 20071019, end: 20071108
  4. NYSTATIN [Concomitant]
     Indication: PRODUCT USED FOR UNKNOWN INDICATION
     Route: 048
  5. HEPARIN SODIUM INJECTION [Suspect]
     Indication: CENTRAL VENOUS CATHETERISATION
     Route: 058
     Dates: start: 20071008, end: 20071104
  6. HEPARIN SODIUM INJECTION [Suspect]
     Route: 042
     Dates: start: 20071018, end: 20071018
  7. HEPARIN SODIUM INJECTION [Suspect]
     Route: 010
     Dates: start: 20071022, end: 20071105
  8. HEPARIN SODIUM INJECTION [Suspect]
     Route: 042
     Dates: start: 20071019, end: 20071108
  9. GLUCOPHAGE [Concomitant]
     Indication: PRODUCT USED FOR UNKNOWN INDICATION
     Route: 065
  10. ACTOS [Concomitant]
     Indication: PRODUCT USED FOR UNKNOWN INDICATION
     Route: 065
  11. CARVEDILOL [Concomitant]
     Indication: PRODUCT USED FOR UNKNOWN INDICATION
     Route: 065
  12. CASTOR OIL [Concomitant]
     Indication: PRODUCT USED FOR UNKNOWN INDICATION
     Route: 061
  13. DIALYVITE [Concomitant]
     Indication: PRODUCT USED FOR UNKNOWN INDICATION
     Route: 065
  14. NORMAL SALINE [Concomitant]
     Indication: INTRAVENOUS CATHETER MANAGEMENT
     Route: 042
  15. POTASSIUM CHLORIDE [Concomitant]
     Indication: PRODUCT USED FOR UNKNOWN INDICATION
     Route: 048
  16. VITAMIN K TAB [Concomitant]
     Indication: PRODUCT USED FOR UNKNOWN INDICATION
     Route: 048
  17. MORPHINE [Concomitant]
     Indication: PAIN
     Route: 042
  18. HEPARIN SODIUM INJECTION [Suspect]
     Route: 042
     Dates: start: 20071018, end: 20071018
  19. HEPARIN SODIUM INJECTION [Suspect]
     Route: 010
     Dates: start: 20071022, end: 20071105
  20. HEPARIN SODIUM INJECTION [Suspect]
     Route: 010
     Dates: start: 20071022, end: 20071105
  21. LEVOTHYROXINE SODIUM [Concomitant]
     Indication: PRODUCT USED FOR UNKNOWN INDICATION
     Route: 048
  22. FOLIC ACID [Concomitant]
     Indication: PRODUCT USED FOR UNKNOWN INDICATION
     Route: 048
  23. LASIX [Concomitant]
     Indication: PRODUCT USED FOR UNKNOWN INDICATION
     Route: 048
  24. HEPARIN SODIUM INJECTION [Suspect]
     Indication: INTRAVENOUS CATHETER MANAGEMENT
     Route: 058
     Dates: start: 20071008, end: 20071104
  25. HEPARIN SODIUM INJECTION [Suspect]
     Indication: HAEMODIALYSIS
     Route: 058
     Dates: start: 20071008, end: 20071104
  26. HEPARIN SODIUM INJECTION [Suspect]
     Route: 065
     Dates: start: 20070101
  27. HEPARIN SODIUM INJECTION [Suspect]
     Route: 065
     Dates: start: 20070101
  28. HEPARIN SODIUM INJECTION [Suspect]
     Route: 010
     Dates: start: 20071010, end: 20071105
  29. HEPARIN SODIUM INJECTION [Suspect]
     Route: 010
     Dates: start: 20071010, end: 20071105
  30. HEPARIN SODIUM INJECTION [Suspect]
     Route: 010
     Dates: start: 20071022, end: 20071105
  31. HEPARIN SODIUM INJECTION [Suspect]
     Route: 010
     Dates: start: 20071022, end: 20071105
  32. IBUPROFEN [Concomitant]
     Indication: PAIN
     Route: 048
  33. ONDANSETRON [Concomitant]
     Indication: NAUSEA
     Route: 042
  34. DIPHENHYDRAMINE HCL [Concomitant]
     Indication: TREMOR
     Route: 042
  35. PANTOPRAZOLE [Concomitant]
     Indication: PRODUCT USED FOR UNKNOWN INDICATION
     Route: 048
  36. HYOSCYAMINE [Concomitant]
     Indication: PRODUCT USED FOR UNKNOWN INDICATION
     Route: 048
     Dates: start: 20071209, end: 20071211
  37. HEPARIN SODIUM INJECTION [Suspect]
     Route: 010
     Dates: start: 20070924, end: 20070924
  38. HEPARIN SODIUM INJECTION [Suspect]
     Route: 065
     Dates: start: 20070101
  39. TRAMADOL [Concomitant]
     Indication: PRODUCT USED FOR UNKNOWN INDICATION
     Route: 048
  40. ZOCOR [Concomitant]
     Indication: PRODUCT USED FOR UNKNOWN INDICATION
     Route: 065
  41. HEPARIN SODIUM INJECTION [Suspect]
     Route: 010
     Dates: start: 20071022, end: 20071105
  42. HEPARIN SODIUM INJECTION [Suspect]
     Route: 010
     Dates: start: 20071022, end: 20071105
  43. HEPARIN SODIUM INJECTION [Suspect]
     Route: 010
     Dates: start: 20071022, end: 20071105
  44. HEPARIN SODIUM INJECTION [Suspect]
     Route: 042
     Dates: start: 20071019, end: 20071108
  45. LACTULOSE [Concomitant]
     Indication: PRODUCT USED FOR UNKNOWN INDICATION
     Route: 065
  46. JANUVIA [Concomitant]
     Indication: PRODUCT USED FOR UNKNOWN INDICATION
     Route: 065
  47. ASPIRIN [Concomitant]
     Indication: PRODUCT USED FOR UNKNOWN INDICATION
     Route: 065
  48. METRONIDAZOLE [Concomitant]
     Indication: PRODUCT USED FOR UNKNOWN INDICATION
     Route: 048
     Dates: start: 20071020, end: 20071101
  49. NOVOLIN 70/30 [Concomitant]
     Indication: PRODUCT USED FOR UNKNOWN INDICATION
     Route: 058
  50. VICODIN [Concomitant]
     Indication: PRODUCT USED FOR UNKNOWN INDICATION
     Route: 048
  51. HEPARIN SODIUM INJECTION [Suspect]
     Route: 010
     Dates: start: 20070924, end: 20070924
  52. HEPARIN SODIUM INJECTION [Suspect]
     Route: 065
     Dates: start: 20070101
  53. ATROVENT [Concomitant]
     Indication: PRODUCT USED FOR UNKNOWN INDICATION
     Route: 065
  54. LANTUS [Concomitant]
     Indication: PRODUCT USED FOR UNKNOWN INDICATION
     Route: 065
  55. SEVELAMER [Concomitant]
     Indication: PRODUCT USED FOR UNKNOWN INDICATION
     Route: 048
  56. HEPARIN SODIUM INJECTION [Suspect]
     Route: 042
     Dates: start: 20071018, end: 20071018
  57. HEPARIN SODIUM INJECTION [Suspect]
     Route: 042
     Dates: start: 20071018, end: 20071018
  58. HEPARIN SODIUM INJECTION [Suspect]
     Route: 010
     Dates: start: 20070924, end: 20070924
  59. HEPARIN SODIUM INJECTION [Suspect]
     Route: 010
     Dates: start: 20071010, end: 20071105
  60. HEPARIN SODIUM INJECTION [Suspect]
     Route: 010
     Dates: start: 20071010, end: 20071105
  61. HEPARIN SODIUM INJECTION [Suspect]
     Route: 042
     Dates: start: 20071019, end: 20071108
  62. PREVACID [Concomitant]
     Indication: PRODUCT USED FOR UNKNOWN INDICATION
     Route: 065
  63. METOCLOPRAMIDE [Concomitant]
     Indication: PRODUCT USED FOR UNKNOWN INDICATION
     Route: 065
  64. LACTULOSE [Concomitant]
     Route: 048
  65. PROAMATINE [Concomitant]
     Indication: PRODUCT USED FOR UNKNOWN INDICATION
     Route: 048
  66. VITAMIN B6 [Concomitant]
     Indication: PRODUCT USED FOR UNKNOWN INDICATION
     Route: 048

REACTIONS (12)
  - HEPARIN-INDUCED THROMBOCYTOPENIA [None]
  - HYPOGLYCAEMIA [None]
  - SWELLING [None]
  - CLOSTRIDIUM DIFFICILE COLITIS [None]
  - DEATH [None]
  - ERYTHEMA [None]
  - DRUG HYPERSENSITIVITY [None]
  - HYPOTENSION [None]
  - ANAEMIA [None]
  - CANDIDURIA [None]
  - AGITATION [None]
  - LETHARGY [None]
